FAERS Safety Report 9245477 (Version 1)
Quarter: 2013Q1

REPORT INFORMATION
  Report Type: Spontaneous
  Country: US (occurrence: None)
  Receive Date: 20130305
  Receipt Date: 20130305
  Transmission Date: 20140127
  Serious: Yes (Hospitalization, Other)
  Sender: FDA-Public Use
  Company Number: 163-21880-12060124

PATIENT
  Age: 61 Year
  Sex: Male

DRUGS (16)
  1. REVLIMID [Suspect]
     Indication: PLASMA CELL MYELOMA
     Route: 048
     Dates: start: 200903, end: 2009
  2. FENTANYL (FENTANYL) [Concomitant]
  3. SIMVASTATIN (SIMVASTATIN) [Concomitant]
  4. AMITRIPTYLINE (AMITRIPTYLINE) [Concomitant]
  5. MORPHINE [Concomitant]
  6. ZYRTEC (CETIRIZINE HYDROCHLORIDE) [Concomitant]
  7. FLOMAX [Concomitant]
  8. MIRALAX [Concomitant]
  9. VITAMIN B6 (PYRIDOXINE HYDROCHLORIDE) [Concomitant]
  10. LIDODERM (LIDOCAINE) [Concomitant]
  11. SENNA [Concomitant]
  12. CALCIUM 2/D (CALCIIUM + VIT D) [Concomitant]
  13. PROBIOTIC (BIFIDOBACTERIUM LACTIS) [Concomitant]
  14. MULTIVITAMIN (MULTIVITAMINS) [Concomitant]
  15. ACYCLOVIR (ACICLOVIR) [Concomitant]
  16. COLACE (DOCUSATE SODIUM) [Concomitant]

REACTIONS (6)
  - Clostridium difficile infection [None]
  - Herpes zoster [None]
  - Loss of consciousness [None]
  - Blood test abnormal [None]
  - Constipation [None]
  - Pain [None]
